FAERS Safety Report 4827696-4 (Version None)
Quarter: 2005Q4

REPORT INFORMATION
  Report Type: 
  Country: None (occurrence: None)
  Receive Date: 20051114
  Receipt Date: 20050930
  Transmission Date: 20060501
  Serious: Yes (Other)
  Sender: FDA-Public Use
  Company Number: US-MERCK-0510USA00720

PATIENT
  Age: 54 Year
  Sex: Female
  Weight: 70 kg

DRUGS (10)
  1. VIOXX [Suspect]
     Indication: LIMB INJURY
     Route: 048
     Dates: start: 20011120, end: 20020513
  2. ACYCLOVIR [Concomitant]
     Route: 065
  3. LORATADINE [Concomitant]
     Route: 065
  4. CYTOTEC [Concomitant]
     Route: 065
  5. DICLOFENAC SODIUM [Concomitant]
     Route: 065
  6. FOSAMAX [Concomitant]
     Route: 065
  7. HYDROCODONE BITARTRATE [Concomitant]
     Route: 065
  8. LIPITOR [Concomitant]
     Route: 065
  9. PREMARIN [Concomitant]
     Route: 065
  10. ZOLOFT [Concomitant]
     Route: 065

REACTIONS (1)
  - CEREBROVASCULAR ACCIDENT [None]
